FAERS Safety Report 25076935 (Version 1)
Quarter: 2025Q1

REPORT INFORMATION
  Report Type: Spontaneous
  Country: US (occurrence: US)
  Receive Date: 20250314
  Receipt Date: 20250314
  Transmission Date: 20250408
  Serious: Yes (Other)
  Sender: AMGEN
  Company Number: US-AMGEN-USASP2025046695

PATIENT

DRUGS (1)
  1. REPATHA [Suspect]
     Active Substance: EVOLOCUMAB
     Indication: Product used for unknown indication
     Route: 065

REACTIONS (3)
  - Neuropathy peripheral [Unknown]
  - Arthritis [Unknown]
  - Device difficult to use [Unknown]

NARRATIVE: CASE EVENT DATE: 20250226
